FAERS Safety Report 5179281-5 (Version None)
Quarter: 2006Q4

REPORT INFORMATION
  Report Type: 
  Country: None (occurrence: None)
  Receive Date: 20061219
  Receipt Date: 20061211
  Transmission Date: 20070319
  Serious: Yes (Other)
  Sender: FDA-Public Use
  Company Number: US-JNJFOC-20061203484

PATIENT
  Sex: Female
  Weight: 97.52 kg

DRUGS (1)
  1. TOPAMAX [Suspect]
     Indication: MIGRAINE PROPHYLAXIS
     Dosage: TITRATED UP TO 50 MG TWICE DAILY

REACTIONS (1)
  - HEART RATE IRREGULAR [None]
